FAERS Safety Report 20364268 (Version 1)
Quarter: 2022Q1

REPORT INFORMATION
  Report Type: Spontaneous
  Country: US (occurrence: None)
  Receive Date: 20220121
  Receipt Date: 20220121
  Transmission Date: 20220423
  Serious: Yes (Other)
  Sender: FDA-Public Use
  Company Number: None

PATIENT
  Age: 73 Year
  Sex: Female
  Weight: 58.97 kg

DRUGS (1)
  1. SOTROVIMAB [Suspect]
     Active Substance: SOTROVIMAB
     Indication: COVID-19
     Dosage: FREQUENCY : ONCE;?
     Route: 042
     Dates: start: 20220118, end: 20220118

REACTIONS (5)
  - Sudden death [None]
  - Fall [None]
  - Cardiac arrest [None]
  - Diarrhoea [None]
  - Multiple sclerosis [None]

NARRATIVE: CASE EVENT DATE: 20220120
